FAERS Safety Report 25179282 (Version 1)
Quarter: 2025Q2

REPORT INFORMATION
  Report Type: Spontaneous
  Country: IT (occurrence: IT)
  Receive Date: 20250409
  Receipt Date: 20250409
  Transmission Date: 20250717
  Serious: Yes (Life-Threatening, Other)
  Sender: HIKMA
  Company Number: IT-MLMSERVICE-20250326-PI458503-00270-1

PATIENT

DRUGS (12)
  1. METHYLPREDNISOLONE [Suspect]
     Active Substance: METHYLPREDNISOLONE
     Indication: Pneumonia cytomegaloviral
     Route: 065
  2. METHYLPREDNISOLONE [Suspect]
     Active Substance: METHYLPREDNISOLONE
     Indication: Acute respiratory distress syndrome
  3. METHYLPREDNISOLONE [Suspect]
     Active Substance: METHYLPREDNISOLONE
     Indication: Hepatitis acute
  4. METHYLPREDNISOLONE [Suspect]
     Active Substance: METHYLPREDNISOLONE
     Indication: Familial haemophagocytic lymphohistiocytosis
  5. RUXOLITINIB [Suspect]
     Active Substance: RUXOLITINIB
     Indication: Pneumonia cytomegaloviral
     Route: 065
  6. RUXOLITINIB [Suspect]
     Active Substance: RUXOLITINIB
     Indication: Acute respiratory distress syndrome
  7. RUXOLITINIB [Suspect]
     Active Substance: RUXOLITINIB
     Indication: Hepatitis acute
  8. RUXOLITINIB [Suspect]
     Active Substance: RUXOLITINIB
     Indication: Familial haemophagocytic lymphohistiocytosis
  9. GANCICLOVIR [Concomitant]
     Active Substance: GANCICLOVIR
     Indication: Pneumonia cytomegaloviral
     Route: 065
  10. GANCICLOVIR [Concomitant]
     Active Substance: GANCICLOVIR
     Indication: Acute respiratory distress syndrome
  11. GANCICLOVIR [Concomitant]
     Active Substance: GANCICLOVIR
     Indication: Hepatitis acute
  12. GANCICLOVIR [Concomitant]
     Active Substance: GANCICLOVIR
     Indication: Hepatitis acute

REACTIONS (5)
  - Coma [Unknown]
  - Cerebral haemorrhage [Unknown]
  - Encephalitis [Unknown]
  - Scedosporium infection [Unknown]
  - Pneumonia fungal [Unknown]
